FAERS Safety Report 9228175 (Version 2)
Quarter: 2013Q2

REPORT INFORMATION
  Report Type: Spontaneous
  Country: GR (occurrence: GR)
  Receive Date: 20130412
  Receipt Date: 20130425
  Transmission Date: 20140414
  Serious: Yes (Hospitalization)
  Sender: FDA-Public Use
  Company Number: PHHY2013GR035416

PATIENT
  Age: 13 Year
  Sex: Female
  Weight: 61 kg

DRUGS (6)
  1. ILARIS [Suspect]
     Indication: JUVENILE IDIOPATHIC ARTHRITIS
     Dosage: 150 MG, QMO
     Route: 058
  2. METHOTREXATE [Concomitant]
     Indication: JUVENILE IDIOPATHIC ARTHRITIS
     Dosage: 15 MG, QW
  3. METOJECT [Concomitant]
     Dosage: 15 MG, QW
     Route: 058
  4. FILICINE [Concomitant]
     Dosage: 5 MG, QW
  5. PROZOLON [Concomitant]
     Dosage: 5 MG, UNK
  6. CORTICOSTEROID NOS [Concomitant]

REACTIONS (3)
  - Histiocytosis haematophagic [Recovering/Resolving]
  - Epstein-Barr virus infection [Recovering/Resolving]
  - Pyrexia [Recovering/Resolving]
